FAERS Safety Report 22371140 (Version 2)
Quarter: 2024Q4

REPORT INFORMATION
  Report Type: Report from Study
  Country: RO (occurrence: RO)
  Receive Date: 20230526
  Receipt Date: 20241115
  Transmission Date: 20250114
  Serious: Yes (Hospitalization)
  Sender: ROCHE
  Company Number: RO-ROCHE-3354188

PATIENT
  Age: 75 Year
  Sex: Female
  Weight: 110.0 kg

DRUGS (1)
  1. TOCILIZUMAB [Suspect]
     Active Substance: TOCILIZUMAB
     Indication: Polyarthritis
     Route: 058

REACTIONS (5)
  - Concussion [Unknown]
  - Cerebrovascular accident [Unknown]
  - Thrombosis [Recovered/Resolved]
  - Speech disorder [Recovered/Resolved]
  - Visual impairment [Unknown]
